FAERS Safety Report 7952873-3 (Version None)
Quarter: 2011Q4

REPORT INFORMATION
  Report Type: 
  Country: None (occurrence: None)
  Receive Date: 20111201
  Receipt Date: 20111126
  Transmission Date: 20120403
  Serious: Yes (Life-Threatening)
  Sender: FDA-Public Use
  Company Number: US-BAYER-2011-038376

PATIENT
  Age: 39 Year
  Sex: Female
  Weight: 80 kg

DRUGS (10)
  1. CARDIZEM SR [Concomitant]
     Indication: HYPERTENSION
     Dosage: UNK
     Dates: start: 20070101, end: 20090101
  2. LEVEMIR [Concomitant]
  3. GLIMEPIRIDE [Concomitant]
     Dosage: 4 MG, DAILY
     Route: 048
  4. YAZ [Suspect]
     Indication: POLYCYSTIC OVARIES
  5. CRESTOR [Concomitant]
     Dosage: 10 MG, EVRY OTHER DAY
     Route: 048
  6. PHENTERMINE [Concomitant]
     Route: 048
  7. YAZ [Suspect]
     Indication: MENSTRUAL CYCLE MANAGEMENT
     Dosage: UNK
     Route: 048
     Dates: start: 20070801, end: 20080401
  8. NOVOLOG [Concomitant]
     Dosage: TITRATED
     Route: 058
  9. LISINOPRIL [Concomitant]
     Indication: HYPERTENSION
     Dosage: 20 MG, DAILY
     Route: 048
     Dates: start: 20060101, end: 20100101
  10. DILTIAZEM HCL [Concomitant]
     Dosage: 180 MG, QD
     Route: 048

REACTIONS (4)
  - ANXIETY [None]
  - DEEP VEIN THROMBOSIS [None]
  - INJURY [None]
  - PAIN [None]
